FAERS Safety Report 4367953-1 (Version None)
Quarter: 2004Q2

REPORT INFORMATION
  Report Type: 
  Country: None (occurrence: None)
  Receive Date: 20040601
  Receipt Date: 20040514
  Transmission Date: 20050107
  Serious: Yes (Hospitalization, Other)
  Sender: FDA-Public Use
  Company Number: CHPA2004US02242

PATIENT
  Age: 15 Year
  Sex: Male
  Weight: 66.7 kg

DRUGS (1)
  1. EX-LAX REG STR CHOCOLATED LAX PCS SEN (NCH)(SENNA GLYCOSIDES)(CA SALTS [Suspect]
     Dosage: 8 PIECES, ONCE/SINGLE, ORAL
     Route: 048
     Dates: start: 20040423, end: 20040423

REACTIONS (14)
  - ABDOMINAL PAIN [None]
  - ACCIDENTAL EXPOSURE [None]
  - ACCIDENTAL OVERDOSE [None]
  - ASTHENIA [None]
  - DEHYDRATION [None]
  - DIARRHOEA [None]
  - DYSPEPSIA [None]
  - FATIGUE [None]
  - FLATULENCE [None]
  - GALLBLADDER DISORDER [None]
  - INTESTINAL SPASM [None]
  - MALAISE [None]
  - STOMACH DISCOMFORT [None]
  - WEIGHT DECREASED [None]
